FAERS Safety Report 7439655-6 (Version None)
Quarter: 2011Q2

REPORT INFORMATION
  Report Type: 
  Country: None (occurrence: None)
  Receive Date: 20110427
  Receipt Date: 20110418
  Transmission Date: 20111010
  Serious: Yes (Other)
  Sender: FDA-Public Use
  Company Number: GB-JNJFOC-20110409025

PATIENT
  Age: 33 Year
  Sex: Female

DRUGS (12)
  1. CYCLOPHOSPHAMIDE [Suspect]
     Indication: BURKITT'S LYMPHOMA
     Route: 065
  2. VINCRISTINE [Suspect]
     Indication: BURKITT'S LYMPHOMA
     Route: 065
  3. METHOTREXATE [Suspect]
     Indication: BURKITT'S LYMPHOMA
     Route: 065
  4. IFOSFAMIDE [Suspect]
     Indication: BURKITT'S LYMPHOMA
     Route: 065
  5. CYTARABINE [Suspect]
     Indication: BURKITT'S LYMPHOMA
     Route: 065
  6. RALTEGRAVIR [Concomitant]
     Indication: ANTIRETROVIRAL THERAPY
     Route: 065
  7. ETOPOSIDE [Suspect]
     Indication: BURKITT'S LYMPHOMA
     Route: 065
  8. ANTIPSYCHOTIC MEDICATION [Concomitant]
     Indication: PSYCHOTIC DISORDER
     Route: 065
  9. DOXORUBICIN HCL [Suspect]
     Indication: BURKITT'S LYMPHOMA
     Route: 042
  10. TENOFOVIR DISOPROXIL FUMARATE [Concomitant]
     Indication: ANTIRETROVIRAL THERAPY
     Route: 065
  11. EMTRICITABINE [Concomitant]
     Indication: ANTIRETROVIRAL THERAPY
     Route: 065
  12. ETRAVIRINE [Concomitant]
     Indication: ANTIRETROVIRAL THERAPY
     Route: 065

REACTIONS (3)
  - PNEUMOCYSTIS JIROVECI PNEUMONIA [None]
  - MUCOSAL INFLAMMATION [None]
  - OESOPHAGEAL CANDIDIASIS [None]
